FAERS Safety Report 6138625-8 (Version None)
Quarter: 2009Q1

REPORT INFORMATION
  Report Type: 
  Country: None (occurrence: None)
  Receive Date: 20090326
  Receipt Date: 20090318
  Transmission Date: 20090719
  Serious: Yes (Hospitalization, Disabling, Other)
  Sender: FDA-Public Use
  Company Number: TPG2009A00137

PATIENT
  Age: 66 Year
  Sex: Female

DRUGS (7)
  1. ACTOS [Suspect]
     Indication: TYPE 2 DIABETES MELLITUS
     Dosage: 45 MG (1 IN 1 D), PER ORAL; 30 MG (MG), PER ORAL
     Route: 048
     Dates: start: 20050101, end: 20081102
  2. ACTOS [Suspect]
     Indication: TYPE 2 DIABETES MELLITUS
     Dosage: 45 MG (1 IN 1 D), PER ORAL; 30 MG (MG), PER ORAL
     Route: 048
     Dates: start: 20081103, end: 20090119
  3. METOPROLOL TARTRATE [Concomitant]
  4. MARCUMAR [Concomitant]
  5. LOVASTATIN [Concomitant]
  6. FLUVASTATIN [Concomitant]
  7. CA  VITAMIN D3 (COLECALCIFEROL, CALCIUM) [Concomitant]

REACTIONS (4)
  - CONTUSION [None]
  - FALL [None]
  - LUMBAR VERTEBRAL FRACTURE [None]
  - OSTEOPOROSIS [None]
